FAERS Safety Report 21551473 (Version 3)
Quarter: 2022Q4

REPORT INFORMATION
  Report Type: Spontaneous
  Country: JP (occurrence: JP)
  Receive Date: 20221103
  Receipt Date: 20221222
  Transmission Date: 20230112
  Serious: Yes (Other)
  Sender: FDA-Public Use
  Company Number: JP-SA-2022SA450948

PATIENT
  Age: 49 Year
  Sex: Female
  Weight: 47 kg

DRUGS (5)
  1. DUPIXENT [Suspect]
     Active Substance: DUPILUMAB
     Indication: Asthma
     Dosage: 300 MG, QOW
     Route: 058
     Dates: start: 20190904, end: 20211118
  2. DUPIXENT [Suspect]
     Active Substance: DUPILUMAB
     Dosage: 300 MG, QOW
     Route: 058
     Dates: start: 20220601, end: 20221102
  3. FLUTICASONE PROPIONATE\FORMOTEROL FUMARATE [Concomitant]
     Active Substance: FLUTICASONE PROPIONATE\FORMOTEROL FUMARATE
     Indication: Asthma
     Dosage: DAILY DOSE: 1 - 2 INHALATIONS, BID
     Route: 055
     Dates: start: 20190904
  4. FLUTICASONE PROPIONATE\FORMOTEROL FUMARATE [Concomitant]
     Active Substance: FLUTICASONE PROPIONATE\FORMOTEROL FUMARATE
     Indication: Bronchospasm
     Dosage: 2 - 0 - 2
     Route: 055
     Dates: start: 20221102
  5. MONTELUKAST SODIUM [Concomitant]
     Active Substance: MONTELUKAST SODIUM
     Indication: Asthma
     Dosage: 10 MG, QD
     Route: 048
     Dates: start: 20190904

REACTIONS (11)
  - Pneumonia [Recovering/Resolving]
  - Asthma [Recovering/Resolving]
  - Cough [Recovering/Resolving]
  - Dyspnoea [Recovering/Resolving]
  - Gastroenteritis eosinophilic [Not Recovered/Not Resolved]
  - Dyspepsia [Unknown]
  - Bronchospasm [Unknown]
  - Wheezing [Unknown]
  - Rash maculo-papular [Unknown]
  - Pruritus [Unknown]
  - Eosinophil count increased [Recovering/Resolving]

NARRATIVE: CASE EVENT DATE: 20211101
